FAERS Safety Report 9782197 (Version 2)
Quarter: 2014Q1

REPORT INFORMATION
  Report Type: Report from Study
  Country: CA (occurrence: CA)
  Receive Date: 20131226
  Receipt Date: 20140129
  Transmission Date: 20141002
  Serious: Yes (Life-Threatening, Hospitalization)
  Sender: FDA-Public Use
  Company Number: CA-ROCHE-1324362

PATIENT
  Age: 61 Year
  Sex: Female

DRUGS (1)
  1. RANIBIZUMAB [Suspect]
     Indication: DIABETIC RETINOPATHY
     Dosage: DOSE: 0.05 CC.?MOST RECENT DOSE: 28/MAY/2013
     Route: 050
     Dates: start: 20130226

REACTIONS (7)
  - Myocardial infarction [Recovered/Resolved]
  - Pneumothorax [Recovering/Resolving]
  - Pulmonary hypertension [Unknown]
  - Tricuspid valve incompetence [Unknown]
  - Mycobacterial infection [Recovered/Resolved]
  - Lung disorder [Recovered/Resolved]
  - Chronic obstructive pulmonary disease [Recovered/Resolved]
